FAERS Safety Report 22625191 (Version 1)
Quarter: 2023Q2

REPORT INFORMATION
  Report Type: Spontaneous
  Country: CA (occurrence: None)
  Receive Date: 20230620
  Receipt Date: 20230620
  Transmission Date: 20230721
  Serious: Yes (Life-Threatening)
  Sender: FDA-Public Use
  Company Number: None

PATIENT
  Age: 47 Year
  Sex: Female
  Weight: 81 kg

DRUGS (2)
  1. BAQSIMI [Suspect]
     Active Substance: GLUCAGON
     Indication: Type 1 diabetes mellitus
     Dates: start: 20230615, end: 20230615
  2. INSULIN NOS [Concomitant]
     Active Substance: INSULIN NOS

REACTIONS (8)
  - Blood glucose decreased [None]
  - Epistaxis [None]
  - Seizure [None]
  - Choking [None]
  - Rhinalgia [None]
  - Eye pain [None]
  - Eye swelling [None]
  - Visual impairment [None]

NARRATIVE: CASE EVENT DATE: 20230615
